FAERS Safety Report 4358057-2 (Version None)
Quarter: 2004Q2

REPORT INFORMATION
  Report Type: 
  Country: None (occurrence: None)
  Receive Date: 20040510
  Receipt Date: 20040426
  Transmission Date: 20050107
  Serious: No
  Sender: FDA-Public Use
  Company Number: 04P-163-0258833-00

PATIENT
  Age: 60 Year
  Sex: Male
  Weight: 108.8633 kg

DRUGS (7)
  1. HUMIRA [Suspect]
     Dosage: 40 MG, SUBCUTANEOUS
     Route: 058
     Dates: start: 20040201
  2. INFLIXIMAB [Suspect]
     Indication: RHEUMATOID ARTHRITIS
     Dosage: INTRAVENOUS
     Route: 042
     Dates: start: 20031201
  3. METHOTREXATE SODIUM [Concomitant]
  4. INDOMETHACIN [Concomitant]
  5. FOLIC ACID [Concomitant]
  6. CALCIUM WITH VITAMIN D [Concomitant]
  7. ALENDRONATE SODIUM [Concomitant]

REACTIONS (2)
  - ARTERITIS [None]
  - DRUG INEFFECTIVE [None]
